FAERS Safety Report 11406919 (Version 1)
Quarter: 2015Q3

REPORT INFORMATION
  Report Type: Report from Study
  Country: DE (occurrence: DE)
  Receive Date: 20150821
  Receipt Date: 20150821
  Transmission Date: 20151125
  Serious: Yes (Death)
  Sender: FDA-Public Use
  Company Number: DE-ABBVIE-15P-062-1446509-00

PATIENT
  Sex: Female

DRUGS (1)
  1. DUODOPA [Suspect]
     Active Substance: CARBIDOPA\LEVODOPA
     Indication: PARKINSON^S DISEASE
     Dosage: MD 6.5 ML, CRD 2.0 ML/HR, ED 1.0 ML
     Route: 050
     Dates: start: 20110628

REACTIONS (5)
  - Epilepsy [Fatal]
  - Cachexia [Fatal]
  - Akinesia [Fatal]
  - Cardiac disorder [Fatal]
  - Parkinson^s disease [Fatal]
